FAERS Safety Report 7336101-8 (Version None)
Quarter: 2011Q1

REPORT INFORMATION
  Report Type: 
  Country: None (occurrence: None)
  Receive Date: 20110301
  Receipt Date: 20110301
  Transmission Date: 20110831
  Serious: Yes (Other)
  Sender: FDA-Public Use
  Company Number: None

PATIENT
  Age: 48 Year
  Sex: Female
  Weight: 68.9467 kg

DRUGS (2)
  1. REMBRANT 2 HOUR WHITENING KIT [Suspect]
     Indication: DENTAL COSMETIC PROCEDURE
     Dosage: TOPICAL
     Route: 061
     Dates: start: 20110206
  2. UNSPECIFIED VITAMINS [Concomitant]

REACTIONS (6)
  - BLISTER [None]
  - LIP SWELLING [None]
  - MOUTH HAEMORRHAGE [None]
  - BURNING SENSATION [None]
  - ERYTHEMA [None]
  - GLOSSODYNIA [None]
